FAERS Safety Report 16790446 (Version 1)
Quarter: 2019Q3

REPORT INFORMATION
  Report Type: Spontaneous
  Country: US (occurrence: US)
  Receive Date: 20190910
  Receipt Date: 20190910
  Transmission Date: 20191005
  Serious: Yes (Other)
  Sender: FDA-Public Use
  Company Number: US-PFIZER INC-2019386154

PATIENT
  Age: 66 Year
  Sex: Female
  Weight: 83.46 kg

DRUGS (1)
  1. CHANTIX [Suspect]
     Active Substance: VARENICLINE TARTRATE
     Indication: SMOKING CESSATION THERAPY
     Dosage: UNK, 2X/DAY
     Dates: end: 201908

REACTIONS (6)
  - Anxiety [Recovering/Resolving]
  - Depressed mood [Recovering/Resolving]
  - Screaming [Recovering/Resolving]
  - Suicidal ideation [Recovering/Resolving]
  - Depression [Recovering/Resolving]
  - Feeling guilty [Recovering/Resolving]
